FAERS Safety Report 7734091-7 (Version None)
Quarter: 2011Q3

REPORT INFORMATION
  Report Type: 
  Country: None (occurrence: None)
  Receive Date: 20110907
  Receipt Date: 20110830
  Transmission Date: 20111222
  Serious: Yes (Other)
  Sender: FDA-Public Use
  Company Number: US-PFIZER INC-2011180148

PATIENT
  Sex: Female
  Weight: 70.748 kg

DRUGS (4)
  1. XALATAN [Suspect]
     Indication: INTRAOCULAR PRESSURE TEST
     Dosage: UNK, DAILY
     Route: 047
     Dates: start: 20100503, end: 20110802
  2. XALATAN [Suspect]
     Indication: OPEN ANGLE GLAUCOMA
  3. LATANOPROST [Suspect]
     Indication: INTRAOCULAR PRESSURE TEST
     Dosage: UNK
     Route: 047
     Dates: start: 20110601, end: 20110801
  4. POLYETHYLENE GLYCOL [Concomitant]
     Dosage: UNK

REACTIONS (3)
  - PRURITUS GENERALISED [None]
  - PRURITUS [None]
  - HYPERSENSITIVITY [None]
